FAERS Safety Report 4942635-3 (Version None)
Quarter: 2006Q1

REPORT INFORMATION
  Report Type: 
  Country: None (occurrence: None)
  Receive Date: 20060308
  Receipt Date: 20060227
  Transmission Date: 20060701
  Serious: Yes (Hospitalization, Other)
  Sender: FDA-Public Use
  Company Number: HQWYE044328FEB06

PATIENT
  Age: 58 Year
  Sex: Female
  Weight: 87 kg

DRUGS (4)
  1. TYGACIL [Suspect]
     Indication: KLEBSIELLA INFECTION
     Dosage: 100 MG LOAD THEN 50 MG EVERY 12 HOURS, INTRAVENOUS
     Route: 042
     Dates: start: 20060219
  2. TYGACIL [Suspect]
     Indication: MULTIPLE-DRUG RESISTANCE
     Dosage: 100 MG LOAD THEN 50 MG EVERY 12 HOURS, INTRAVENOUS
     Route: 042
     Dates: start: 20060219
  3. LANTUS [Concomitant]
  4. NOVOLOG [Concomitant]

REACTIONS (4)
  - CONVULSION [None]
  - HYPOGLYCAEMIA [None]
  - KLEBSIELLA INFECTION [None]
  - SPUTUM CULTURE POSITIVE [None]
